FAERS Safety Report 18083131 (Version 1)
Quarter: 2020Q3

REPORT INFORMATION
  Report Type: Spontaneous
  Country: None (occurrence: CA)
  Receive Date: 20200729
  Receipt Date: 20200729
  Transmission Date: 20201103
  Serious: Yes (Other)
  Sender: FDA-Public Use
  Company Number: CA-ORION CORPORATION ORION PHARMA-20_00010098

PATIENT
  Age: 4 Year
  Sex: Male

DRUGS (3)
  1. PREDNISONE. [Suspect]
     Active Substance: PREDNISONE
     Indication: ROSAI-DORFMAN SYNDROME
     Route: 065
  2. MERCAPTOPURINE. [Suspect]
     Active Substance: MERCAPTOPURINE
     Indication: ROSAI-DORFMAN SYNDROME
     Route: 065
  3. METHOTREXATE. [Suspect]
     Active Substance: METHOTREXATE
     Indication: ROSAI-DORFMAN SYNDROME
     Route: 065

REACTIONS (4)
  - Product use in unapproved indication [Unknown]
  - Pancytopenia [Recovering/Resolving]
  - Hepatosplenomegaly [Recovering/Resolving]
  - Drug ineffective for unapproved indication [Unknown]
